FAERS Safety Report 4361143-4 (Version None)
Quarter: 2004Q2

REPORT INFORMATION
  Report Type: 
  Country: None (occurrence: None)
  Receive Date: 20040511
  Receipt Date: 20040121
  Transmission Date: 20050107
  Serious: Yes (Hospitalization)
  Sender: FDA-Public Use
  Company Number: USA031152846

PATIENT
  Age: 39 Year
  Sex: Female
  Weight: 105 kg

DRUGS (2)
  1. SARAFEM [Suspect]
     Indication: PREMENSTRUAL SYNDROME
     Dosage: 20 MG/DAY
     Dates: start: 20030812, end: 20030912
  2. DEPAKOTE [Concomitant]

REACTIONS (5)
  - DRUG EFFECT DECREASED [None]
  - FATIGUE [None]
  - INSOMNIA [None]
  - MANIA [None]
  - PAIN IN EXTREMITY [None]
